FAERS Safety Report 24840007 (Version 5)
Quarter: 2025Q1

REPORT INFORMATION
  Report Type: Spontaneous
  Country: CA (occurrence: CA)
  Receive Date: 20250114
  Receipt Date: 20250305
  Transmission Date: 20250408
  Serious: Yes (Other)
  Sender: CELLTRION
  Company Number: CA-PFIZER INC-202500003542

PATIENT

DRUGS (3)
  1. INFLECTRA [Suspect]
     Active Substance: INFLIXIMAB-DYYB
     Indication: Colitis ulcerative
     Route: 042
     Dates: start: 20241125
  2. INFLECTRA [Suspect]
     Active Substance: INFLIXIMAB-DYYB
     Route: 042
     Dates: start: 20250124
  3. PREDNISONE [Concomitant]
     Active Substance: PREDNISONE
     Route: 048
     Dates: start: 20200604

REACTIONS (16)
  - Abortion spontaneous [Unknown]
  - Pulmonary embolism [Unknown]
  - Pneumonia [Unknown]
  - Breast pain [Recovering/Resolving]
  - Illness [Recovered/Resolved]
  - Oropharyngeal pain [Unknown]
  - Pulmonary pain [Unknown]
  - Fatigue [Unknown]
  - Musculoskeletal chest pain [Unknown]
  - Arthralgia [Unknown]
  - Viral infection [Unknown]
  - Streptococcal infection [Unknown]
  - Scarlet fever [Unknown]
  - Gingival bleeding [Unknown]
  - Epistaxis [Unknown]
  - Heavy menstrual bleeding [Unknown]

NARRATIVE: CASE EVENT DATE: 20240101
